FAERS Safety Report 13805383 (Version 1)
Quarter: 2017Q3

REPORT INFORMATION
  Report Type: Spontaneous
  Country: US (occurrence: US)
  Receive Date: 20170728
  Receipt Date: 20170728
  Transmission Date: 20171127
  Serious: Yes (Life-Threatening, Hospitalization, Other)
  Sender: FDA-Public Use
  Company Number: US-SUN PHARMACEUTICAL INDUSTRIES LTD-2017US-146456

PATIENT
  Age: 54 Year
  Sex: Male

DRUGS (4)
  1. CLOPIDOGREL [Concomitant]
     Active Substance: CLOPIDOGREL BISULFATE
     Indication: PRODUCT USED FOR UNKNOWN INDICATION
     Dosage: UNK
     Route: 065
  2. ASPIRIN. [Concomitant]
     Active Substance: ASPIRIN
     Indication: PRODUCT USED FOR UNKNOWN INDICATION
     Dosage: UNK
     Route: 065
  3. GEMCITABINE [Suspect]
     Active Substance: GEMCITABINE\GEMCITABINE HYDROCHLORIDE
     Indication: BLADDER CANCER STAGE II
     Dosage: UNK
     Route: 065
  4. TAXOL [Suspect]
     Active Substance: PACLITAXEL
     Indication: BLADDER CANCER STAGE II
     Dosage: UNK
     Route: 065

REACTIONS (4)
  - Thrombocytopenia [Unknown]
  - Acute myocardial infarction [Unknown]
  - Pulmonary embolism [Unknown]
  - Bone marrow failure [Unknown]
